FAERS Safety Report 9917731 (Version 2)
Quarter: 2014Q2

REPORT INFORMATION
  Report Type: Report from Study
  Country: US (occurrence: US)
  Receive Date: 20140221
  Receipt Date: 20140602
  Transmission Date: 20141212
  Serious: Yes (Other)
  Sender: FDA-Public Use
  Company Number: US-ABBVIE-14P-163-1202590-00

PATIENT
  Age: 62 Year
  Sex: Male

DRUGS (4)
  1. HUMIRA [Suspect]
     Indication: PSORIASIS
     Route: 058
     Dates: start: 201106
  2. FLOMAX [Concomitant]
     Indication: PROSTATOMEGALY
     Dosage: EVERY EVENING
  3. FINASTERIDE [Concomitant]
     Indication: PROSTATOMEGALY
  4. ZOLPIDEM [Concomitant]
     Indication: INSOMNIA
     Dates: start: 201401

REACTIONS (8)
  - Gallbladder pain [Recovering/Resolving]
  - Gastrooesophageal reflux disease [Unknown]
  - Myalgia [Unknown]
  - Inflammation [Unknown]
  - Device issue [Unknown]
  - Incorrect dose administered [Unknown]
  - Injection site pain [Unknown]
  - Injection site urticaria [Unknown]
